FAERS Safety Report 5275826-5 (Version None)
Quarter: 2007Q1

REPORT INFORMATION
  Report Type: 
  Country: None (occurrence: None)
  Receive Date: 20070326
  Receipt Date: 20070315
  Transmission Date: 20070707
  Serious: Yes (Hospitalization)
  Sender: FDA-Public Use
  Company Number: HQWYE162919MAR07

PATIENT
  Sex: Female

DRUGS (1)
  1. ADVIL PM [Suspect]
     Indication: INSOMNIA
     Dosage: 1/2 TABLET, ONE TIME
     Route: 048
     Dates: start: 20060801, end: 20060801

REACTIONS (3)
  - DRUG INEFFECTIVE [None]
  - GLOBAL AMNESIA [None]
  - RESTLESSNESS [None]
